FAERS Safety Report 9449227 (Version 2)
Quarter: 2013Q3

REPORT INFORMATION
  Report Type: Spontaneous
  Country: US (occurrence: US)
  Receive Date: 20130808
  Receipt Date: 20130816
  Transmission Date: 20140515
  Serious: Yes (Other)
  Sender: FDA-Public Use
  Company Number: US-LUNDBECK-DKLU1092881

PATIENT
  Sex: Male

DRUGS (3)
  1. SABRIL (TABLET) [Suspect]
     Indication: CONVULSION
     Dates: start: 20130731
  2. PHENOBARBITAL [Concomitant]
     Indication: PRODUCT USED FOR UNKNOWN INDICATION
  3. LEVETIRACETAM [Concomitant]
     Indication: PRODUCT USED FOR UNKNOWN INDICATION

REACTIONS (4)
  - Motor dysfunction [Unknown]
  - Deafness unilateral [Unknown]
  - Tinnitus [Unknown]
  - Headache [Unknown]
